FAERS Safety Report 10653116 (Version 4)
Quarter: 2015Q1

REPORT INFORMATION
  Report Type: Spontaneous
  Country: JP (occurrence: JP)
  Receive Date: 20141215
  Receipt Date: 20150223
  Transmission Date: 20150720
  Serious: Yes (Other)
  Sender: FDA-Public Use
  Company Number: JP-PFIZER INC-2014340491

PATIENT
  Age: 80 Year
  Sex: Male
  Weight: 50 kg

DRUGS (8)
  1. SENNOSIDE A [Concomitant]
     Active Substance: SENNOSIDE A
     Dosage: UNK
     Route: 048
  2. DOMPERIDONE [Suspect]
     Active Substance: DOMPERIDONE
     Dosage: UNK
  3. TIEKAPTO [Concomitant]
     Dosage: UNK
  4. LYRICA [Suspect]
     Active Substance: PREGABALIN
     Indication: PAIN
     Dosage: 50 MG, 2X/DAY
     Route: 048
     Dates: end: 20140912
  5. MEMARY [Concomitant]
     Active Substance: MEMANTINE HYDROCHLORIDE
     Dosage: UNK
  6. DONEPEZIL [Concomitant]
     Active Substance: DONEPEZIL
     Dosage: UNK
     Route: 048
  7. MAGMITT [Concomitant]
     Active Substance: MAGNESIUM OXIDE
     Dosage: UNK
  8. TRAZENTA [Concomitant]
     Active Substance: LINAGLIPTIN
     Dosage: UNK

REACTIONS (2)
  - Hepatic function abnormal [Recovering/Resolving]
  - Fall [Recovered/Resolved]

NARRATIVE: CASE EVENT DATE: 20140724
